FAERS Safety Report 23553884 (Version 6)
Quarter: 2025Q2

REPORT INFORMATION
  Report Type: Spontaneous
  Country: IN (occurrence: IN)
  Receive Date: 20240222
  Receipt Date: 20250529
  Transmission Date: 20250717
  Serious: Yes (Hospitalization, Other)
  Sender: PFIZER
  Company Number: IN-PFIZER INC-PV202300132029

PATIENT
  Age: 74 Year
  Sex: Female

DRUGS (10)
  1. PALBOCICLIB [Suspect]
     Active Substance: PALBOCICLIB
     Route: 048
     Dates: start: 20220715
  2. PALBOCICLIB [Suspect]
     Active Substance: PALBOCICLIB
     Route: 048
     Dates: end: 20241125
  3. DENOSUMAB [Concomitant]
     Active Substance: DENOSUMAB
     Dosage: 120 MG, ONCE IN 3 MONTHS
     Route: 058
  4. ONDANSETRON HYDROCHLORIDE [Concomitant]
     Active Substance: ONDANSETRON HYDROCHLORIDE
     Route: 048
  5. LETROZOLE [Concomitant]
     Active Substance: LETROZOLE
     Route: 048
  6. LETROZOLE [Concomitant]
     Active Substance: LETROZOLE
     Dates: start: 20220715, end: 2024
  7. LETROZOLE [Concomitant]
     Active Substance: LETROZOLE
     Dates: start: 20241219
  8. CAMPHOR\GLYCERIN\MENTHOL\ZINC OXIDE [Concomitant]
     Active Substance: CAMPHOR\GLYCERIN\MENTHOL\ZINC OXIDE
     Dosage: UNK, 1X/DAY (BEFORE BREAKFAST (IF REQUIRED))
     Route: 048
  9. CALCIUM CARBONATE\CHOLECALCIFEROL [Concomitant]
     Active Substance: CALCIUM CARBONATE\CHOLECALCIFEROL
     Route: 048
  10. ULTRACET [Concomitant]
     Active Substance: ACETAMINOPHEN\TRAMADOL HYDROCHLORIDE
     Route: 048

REACTIONS (7)
  - Myocardial infarction [Recovered/Resolved]
  - Cardiac arrest [Recovered/Resolved]
  - Cytopenia [Recovered/Resolved]
  - Second primary malignancy [Unknown]
  - Ovarian cancer [Unknown]
  - Cerebrovascular accident [Unknown]
  - Tumour marker increased [Unknown]

NARRATIVE: CASE EVENT DATE: 20240101
